FAERS Safety Report 23182609 (Version 2)
Quarter: 2024Q1

REPORT INFORMATION
  Report Type: Spontaneous
  Country: CN (occurrence: CN)
  Receive Date: 20231114
  Receipt Date: 20240226
  Transmission Date: 20240410
  Serious: Yes (Other)
  Sender: FDA-Public Use
  Company Number: CN-PFIZER INC-PV202300184176

PATIENT
  Age: 10 Month
  Sex: Female
  Weight: 10 kg

DRUGS (2)
  1. AZITHROMYCIN [Suspect]
     Active Substance: AZITHROMYCIN
     Indication: Pneumonia
     Dosage: 100 MG, 1X/DAY
     Route: 048
     Dates: start: 20231024, end: 20231024
  2. AZITHROMYCIN [Suspect]
     Active Substance: AZITHROMYCIN
     Dosage: 50 MG, 1X/DAY
     Route: 048
     Dates: start: 20231025, end: 20231028

REACTIONS (2)
  - Infantile diarrhoea [Recovering/Resolving]
  - Off label use [Unknown]

NARRATIVE: CASE EVENT DATE: 20231025
